FAERS Safety Report 25562044 (Version 1)
Quarter: 2025Q3

REPORT INFORMATION
  Report Type: Spontaneous
  Country: US (occurrence: US)
  Receive Date: 20250716
  Receipt Date: 20250716
  Transmission Date: 20251020
  Serious: No
  Sender: NOVO NORDISK
  Company Number: US-NOVOPROD-1319824

PATIENT
  Age: 43 Year
  Sex: Female

DRUGS (4)
  1. OZEMPIC [Suspect]
     Active Substance: SEMAGLUTIDE
     Indication: Narcolepsy
     Route: 058
  2. OZEMPIC [Suspect]
     Active Substance: SEMAGLUTIDE
     Indication: Weight increased
  3. XYREM [Suspect]
     Active Substance: SODIUM OXYBATE
     Indication: Narcolepsy
     Route: 048
  4. XYREM [Suspect]
     Active Substance: SODIUM OXYBATE
     Indication: Weight increased

REACTIONS (6)
  - Hunger [Unknown]
  - Fibromyalgia [Unknown]
  - Raynaud^s phenomenon [Unknown]
  - Ovarian cyst [Unknown]
  - Memory impairment [Unknown]
  - Product use in unapproved indication [Unknown]
